FAERS Safety Report 24567381 (Version 2)
Quarter: 2025Q3

REPORT INFORMATION
  Report Type: Spontaneous
  Country: JP (occurrence: JP)
  Receive Date: 20241030
  Receipt Date: 20250810
  Transmission Date: 20251021
  Serious: Yes (Hospitalization, Other)
  Sender: ALEXION PHARMACEUTICALS
  Company Number: JP-ASTRAZENECA-230069714_061310_P_1

PATIENT
  Age: 82 Year
  Sex: Male
  Weight: 60 kg

DRUGS (23)
  1. CRESTOR [Suspect]
     Active Substance: ROSUVASTATIN CALCIUM
     Indication: Angina pectoris
     Dosage: 2.5 MILLIGRAM, QD
  2. CRESTOR [Suspect]
     Active Substance: ROSUVASTATIN CALCIUM
     Dosage: 5 MILLIGRAM, BID
  3. WARFARIN [Concomitant]
     Active Substance: WARFARIN
  4. WARFARIN [Concomitant]
     Active Substance: WARFARIN
  5. RUPAFIN [Concomitant]
     Active Substance: RUPATADINE FUMARATE
  6. RUPAFIN [Concomitant]
     Active Substance: RUPATADINE FUMARATE
  7. BISOPROLOL [Concomitant]
     Active Substance: BISOPROLOL
  8. BISOPROLOL [Concomitant]
     Active Substance: BISOPROLOL
  9. PREDNISOLONE [Concomitant]
     Active Substance: PREDNISOLONE
     Indication: Mucous membrane pemphigoid
  10. PREDNISOLONE [Concomitant]
     Active Substance: PREDNISOLONE
  11. MIZORIBINE [Concomitant]
     Active Substance: MIZORIBINE
     Indication: Mucous membrane pemphigoid
  12. MIZORIBINE [Concomitant]
     Active Substance: MIZORIBINE
  13. ATOVAQUONE [Concomitant]
     Active Substance: ATOVAQUONE
  14. ATOVAQUONE [Concomitant]
     Active Substance: ATOVAQUONE
  15. VONOPRAZAN FUMARATE [Concomitant]
     Active Substance: VONOPRAZAN FUMARATE
  16. VONOPRAZAN FUMARATE [Concomitant]
     Active Substance: VONOPRAZAN FUMARATE
  17. ASPIRIN [Concomitant]
     Active Substance: ASPIRIN
  18. ASPIRIN [Concomitant]
     Active Substance: ASPIRIN
  19. SILODOSIN [Concomitant]
     Active Substance: SILODOSIN
  20. SILODOSIN [Concomitant]
     Active Substance: SILODOSIN
  21. BONALON [Concomitant]
     Active Substance: ALENDRONATE SODIUM
  22. FEBUXOSTAT [Concomitant]
     Active Substance: FEBUXOSTAT
  23. FEBUXOSTAT [Concomitant]
     Active Substance: FEBUXOSTAT

REACTIONS (3)
  - Immune-mediated myositis [Recovering/Resolving]
  - Acute kidney injury [Recovering/Resolving]
  - Off label use [Unknown]
